FAERS Safety Report 18071271 (Version 1)
Quarter: 2020Q3

REPORT INFORMATION
  Report Type: Spontaneous
  Country: US (occurrence: US)
  Receive Date: 20200726
  Receipt Date: 20200726
  Transmission Date: 20201103
  Serious: No
  Sender: FDA-Public Use
  Company Number: None

PATIENT
  Age: 31 Year
  Sex: Female

DRUGS (3)
  1. PRENATALS [Concomitant]
  2. BLUMEN CLEAR ADVANCED HAND SANITIZER [Suspect]
     Active Substance: ALCOHOL
     Dates: start: 20200501, end: 20200719
  3. IRON PILLS [Concomitant]
     Active Substance: IRON

REACTIONS (3)
  - Exposure during pregnancy [None]
  - Suspected product quality issue [None]
  - Rash [None]

NARRATIVE: CASE EVENT DATE: 20200610
